FAERS Safety Report 7776302-8 (Version None)
Quarter: 2011Q3

REPORT INFORMATION
  Report Type: 
  Country: None (occurrence: None)
  Receive Date: 20110916
  Receipt Date: 20110906
  Transmission Date: 20111222
  Serious: Yes (Hospitalization)
  Sender: FDA-Public Use
  Company Number: AEGBR201100240

PATIENT
  Age: 33 Year
  Sex: Female

DRUGS (7)
  1. IGIVNEX [Suspect]
     Indication: IDIOPATHIC THROMBOCYTOPENIC PURPURA
     Dosage: 1000 MG/KG;QD;IV
     Route: 042
     Dates: start: 20100922, end: 20100923
  2. LANSOPRAZOLE [Suspect]
     Indication: GASTROOESOPHAGEAL REFLUX PROPHYLAXIS
     Dosage: 30 MG;QD;PO
     Route: 048
     Dates: start: 20100907, end: 20100928
  3. RITUXIMAB (RITUXIMAB) [Suspect]
     Dosage: 375 MG/M**2;BIW;IV
     Route: 042
     Dates: start: 20100917, end: 20100924
  4. TRANEXAMIC ACID [Suspect]
     Dosage: QID;PO
     Route: 048
     Dates: start: 20100922, end: 20100928
  5. NORETHINDRONE [Suspect]
     Dosage: 5 MG;TID;PO
     Route: 048
     Dates: start: 20100922, end: 20100928
  6. DEXAMETHASONE [Concomitant]
  7. ROMIPLOSTIM (NO PREF. NAME) [Suspect]
     Indication: IDIOPATHIC THROMBOCYTOPENIC PURPURA
     Dosage: 1 MG/KG;1X;SC
     Route: 058
     Dates: start: 20100920, end: 20100920

REACTIONS (3)
  - PURPURA [None]
  - RASH MACULO-PAPULAR [None]
  - RASH ERYTHEMATOUS [None]
